FAERS Safety Report 8313926-3 (Version None)
Quarter: 2012Q2

REPORT INFORMATION
  Report Type: 
  Country: None (occurrence: None)
  Receive Date: 20120426
  Receipt Date: 20120426
  Transmission Date: 20120825
  Serious: Yes (Life-Threatening, Hospitalization)
  Sender: FDA-Public Use
  Company Number: None

PATIENT
  Sex: Female

DRUGS (5)
  1. PEGASYS [Suspect]
     Indication: HEPATITIS C
     Dosage: 180 MCG
     Route: 058
  2. RIBASPHERE [Concomitant]
  3. RIBASPHERE [Concomitant]
  4. PEGASYS [Concomitant]
  5. INCIVEK [Concomitant]
     Indication: HEPATITIS C
     Dosage: 750 MG
     Route: 048

REACTIONS (2)
  - ANAEMIA [None]
  - THROMBOCYTOPENIA [None]
